FAERS Safety Report 6517683-2 (Version None)
Quarter: 2009Q4

REPORT INFORMATION
  Report Type: 
  Country: None (occurrence: None)
  Receive Date: 20091224
  Receipt Date: 20091215
  Transmission Date: 20100525
  Serious: Yes (Other)
  Sender: FDA-Public Use
  Company Number: US-SANOFI-AVENTIS-2009SA003578

PATIENT
  Age: 75 Year
  Sex: Female
  Weight: 68.6 kg

DRUGS (19)
  1. MULTAQ [Suspect]
     Indication: ATRIAL FIBRILLATION
     Route: 048
     Dates: start: 20090930, end: 20091101
  2. AMBIEN [Concomitant]
     Route: 048
  3. FLEXERIL [Concomitant]
     Route: 048
  4. FOSAMAX [Concomitant]
     Route: 048
  5. PRIMIDONE [Concomitant]
     Route: 048
  6. ZOLOFT [Concomitant]
     Route: 048
  7. PROTONIX [Concomitant]
     Route: 048
  8. ADVAIR DISKUS 100/50 [Concomitant]
  9. SPIRIVA [Concomitant]
  10. ALBUTEROL [Concomitant]
  11. MUCINEX [Concomitant]
  12. BIOTIN [Concomitant]
     Route: 048
  13. VITAMIN B COMPLEX CAP [Concomitant]
  14. CALCIUM CITRATE/VITAMIN D NOS [Concomitant]
  15. FISH OIL [Concomitant]
     Route: 048
  16. GARLIC [Concomitant]
     Route: 048
  17. MAGNESIUM [Concomitant]
     Route: 048
  18. MULTIVITAMIN [Concomitant]
  19. DARVOCET-N 100 [Concomitant]

REACTIONS (3)
  - ALANINE AMINOTRANSFERASE INCREASED [None]
  - ASPARTATE AMINOTRANSFERASE INCREASED [None]
  - LIVER FUNCTION TEST ABNORMAL [None]
